FAERS Safety Report 22355340 (Version 3)
Quarter: 2023Q4

REPORT INFORMATION
  Report Type: Spontaneous
  Country: CA (occurrence: CA)
  Receive Date: 20230523
  Receipt Date: 20231128
  Transmission Date: 20240110
  Serious: Yes (Other)
  Sender: FDA-Public Use
  Company Number: CA-PFIZER INC-202101466524

PATIENT
  Age: 44 Year
  Sex: Male

DRUGS (3)
  1. SOMAVERT [Suspect]
     Active Substance: PEGVISOMANT
     Indication: Acromegaly
     Dosage: 10 MG EVERY 2 DAYS
     Route: 058
     Dates: start: 2014
  2. RAMIPRIL [Concomitant]
     Active Substance: RAMIPRIL
     Dosage: 2.5 MG (1DF)
  3. SANDOSTATIN [Concomitant]
     Active Substance: OCTREOTIDE ACETATE
     Dosage: 30 MG EVERY 28 DAYS

REACTIONS (4)
  - Thyroid disorder [Unknown]
  - Off label use [Unknown]
  - Heart rate irregular [Unknown]
  - Contusion [Unknown]
